FAERS Safety Report 16697384 (Version 2)
Quarter: 2019Q3

REPORT INFORMATION
  Report Type: Spontaneous
  Country: US (occurrence: US)
  Receive Date: 20190813
  Receipt Date: 20190903
  Transmission Date: 20191004
  Serious: No
  Sender: FDA-Public Use
  Company Number: US-PFIZER INC-2019345523

PATIENT
  Age: 59 Year
  Sex: Female

DRUGS (12)
  1. VITAMIN C [Concomitant]
     Active Substance: ASCORBIC ACID
     Dosage: 500 MG, DAILY
     Route: 048
  2. ALEVE [Concomitant]
     Active Substance: NAPROXEN SODIUM
     Dosage: 220 MG, 2X/DAY [WITH BREAKFAST AND SUPPER]
     Route: 048
  3. FOLVITE [FOLIC ACID] [Concomitant]
     Dosage: 1 MG, DAILY
     Route: 048
     Dates: start: 20190507
  4. HEMAGENICS INTENSIVE CARE [Concomitant]
  5. NATROL MELATONIN [Concomitant]
     Dosage: 3 MG, 1X/DAY (AT BEDTIME)
     Route: 048
  6. THERAGRAN [ASCORBIC ACID;BIOTIN;CALCIUM PANTOTHENATE;CYANOCOBALAMIN;ER [Concomitant]
     Dosage: 1 DF, DAILY
     Route: 048
  7. GELATIN [Concomitant]
     Active Substance: GELATIN
     Dosage: 2 DF, 2X/DAY
  8. VITAMIN C [CALCIUM ASCORBATE] [Concomitant]
     Active Substance: CALCIUM ASCORBATE
     Route: 048
  9. OMEGA 3 FISH OIL [DOCOSAHEXAENOIC ACID;EICOSAPENTAENOIC ACID] [Concomitant]
     Dosage: UNK
     Route: 048
  10. TIOTROPIUM BROMIDE MONOHYDRATE [Concomitant]
     Active Substance: TIOTROPIUM BROMIDE MONOHYDRATE
     Dosage: 5 UG, DAILY [INHALE 5MCG INTO THE LUNGS DAILY]
  11. TREXALL [Suspect]
     Active Substance: METHOTREXATE SODIUM
     Indication: RHEUMATOID ARTHRITIS
     Dosage: 17.5 MG, WEEKLY [TAKE 7 TABLETS (17.5MG TOTAL) ONCE A WEEK]
     Route: 048
     Dates: start: 20190530, end: 20190801
  12. CALCIUM CARBONATE/VITAMIN D3 [Concomitant]
     Active Substance: CALCIUM CARBONATE\CHOLECALCIFEROL
     Route: 048

REACTIONS (3)
  - Aspartate aminotransferase increased [Unknown]
  - Alanine aminotransferase increased [Unknown]
  - Hepatic enzyme increased [Unknown]

NARRATIVE: CASE EVENT DATE: 20190707
